FAERS Safety Report 11358770 (Version 1)
Quarter: 2015Q3

REPORT INFORMATION
  Report Type: Spontaneous
  Country: US (occurrence: None)
  Receive Date: 20150806
  Receipt Date: 20150806
  Transmission Date: 20151125
  Serious: Yes (Other)
  Sender: FDA-Public Use
  Company Number: 2015AP010995

PATIENT
  Age: 18 Year
  Sex: Male
  Weight: 80 kg

DRUGS (4)
  1. DESFERAL (DEFEROXAMINE MESILATE) [Concomitant]
  2. VITAMIN C [Concomitant]
     Active Substance: ASCORBIC ACID
  3. FERRIPROX [Suspect]
     Active Substance: DEFERIPRONE
     Indication: THALASSAEMIA
     Route: 048
     Dates: start: 20150225
  4. FERRIPROX [Suspect]
     Active Substance: DEFERIPRONE
     Indication: HAEMOCHROMATOSIS
     Route: 048
     Dates: start: 20150225

REACTIONS (1)
  - Hepatic enzyme increased [None]
